FAERS Safety Report 13684714 (Version 1)
Quarter: 2017Q2

REPORT INFORMATION
  Report Type: Report from Study
  Country: US (occurrence: US)
  Receive Date: 20170623
  Receipt Date: 20170623
  Transmission Date: 20170830
  Serious: No
  Sender: FDA-Public Use
  Company Number: US-IPSEN BIOPHARMACEUTICALS, INC.-2016-03281

PATIENT
  Sex: Female
  Weight: 53.07 kg

DRUGS (4)
  1. DYSPORT [Suspect]
     Active Substance: ABOBOTULINUMTOXINA
     Indication: MUSCLE SPASMS
  2. DYSPORT [Suspect]
     Active Substance: ABOBOTULINUMTOXINA
     Indication: TEMPOROMANDIBULAR JOINT SYNDROME
  3. SIMVASTATIN. [Concomitant]
     Active Substance: SIMVASTATIN
  4. DYSPORT [Suspect]
     Active Substance: ABOBOTULINUMTOXINA
     Indication: HEADACHE
     Dosage: NOT REPORTED
     Route: 065
     Dates: start: 201511, end: 201511

REACTIONS (2)
  - Therapeutic response unexpected [Unknown]
  - Off label use [Unknown]
